FAERS Safety Report 7230911-3 (Version None)
Quarter: 2011Q1

REPORT INFORMATION
  Report Type: 
  Country: None (occurrence: None)
  Receive Date: 20110118
  Receipt Date: 20110106
  Transmission Date: 20110831
  Serious: Yes (Other)
  Sender: FDA-Public Use
  Company Number: US-ROCHE-731132

PATIENT
  Sex: Male
  Weight: 61.2 kg

DRUGS (8)
  1. IMIPRAMINE [Concomitant]
  2. ADDERALL 10 [Concomitant]
  3. ACCUTANE [Suspect]
     Dosage: STRENGTH: 40 MG, 20 MG
     Route: 065
     Dates: start: 20001001, end: 20001106
  4. ACCUTANE [Suspect]
     Dosage: DOSE INCREASED
     Route: 065
     Dates: start: 20001106, end: 20010101
  5. DEPAKOTE [Concomitant]
     Indication: MIGRAINE
  6. CELEXA [Concomitant]
     Indication: DEPRESSION
  7. ACCUTANE [Suspect]
     Indication: ACNE
     Route: 065
     Dates: start: 19991120
  8. AUGMENTIN '125' [Concomitant]

REACTIONS (9)
  - BLOOD ALKALINE PHOSPHATASE INCREASED [None]
  - EPISTAXIS [None]
  - GASTROINTESTINAL INJURY [None]
  - COLITIS ULCERATIVE [None]
  - BLOOD TRIGLYCERIDES INCREASED [None]
  - DEPRESSION [None]
  - SUICIDAL IDEATION [None]
  - CONJUNCTIVITIS VIRAL [None]
  - GASTROINTESTINAL HAEMORRHAGE [None]
